FAERS Safety Report 8806371 (Version 2)
Quarter: 2012Q4

REPORT INFORMATION
  Report Type: 
  Country: DE (occurrence: CH)
  Receive Date: 20120925
  Receipt Date: 20121008
  Transmission Date: 20130627
  Serious: Yes (Death, Hospitalization, Other)
  Sender: FDA-Public Use
  Company Number: CH-BRISTOL-MYERS SQUIBB COMPANY-16981532

PATIENT
  Age: 64 Year
  Sex: Male

DRUGS (7)
  1. ERBITUX SOLN FOR INF 5MG/ML [Suspect]
     Indication: SQUAMOUS CELL CARCINOMA
     Dosage: 1st dose 400mg/m2 then 250mg/m2. last dose 580 mg
     Route: 042
     Dates: start: 20120816, end: 20120913
  2. AZATHIOPRINE [Suspect]
     Indication: CROHN^S DISEASE
     Dosage: (100mg-50mg-50mg)
     Route: 048
     Dates: end: 20120911
  3. ALDACTONE [Concomitant]
     Route: 048
     Dates: start: 20111125
  4. ASPIRIN [Concomitant]
     Route: 048
     Dates: start: 20010723
  5. ELTROXIN [Concomitant]
     Route: 048
     Dates: start: 20080515
  6. SORTIS [Concomitant]
     Route: 048
     Dates: start: 20010419
  7. NEBILET [Concomitant]
     Route: 048
     Dates: start: 20100218

REACTIONS (1)
  - Agranulocytosis [Fatal]
